FAERS Safety Report 20557472 (Version 1)
Quarter: 2022Q1

REPORT INFORMATION
  Report Type: Spontaneous
  Country: BA (occurrence: None)
  Receive Date: 20220307
  Receipt Date: 20220307
  Transmission Date: 20220423
  Serious: Yes (Other)
  Sender: FDA-Public Use
  Company Number: BA-ROCHE-3036935

PATIENT
  Age: 64 Year

DRUGS (2)
  1. TECENTRIQ [Suspect]
     Active Substance: ATEZOLIZUMAB
     Indication: Transitional cell carcinoma metastatic
     Route: 041
  2. PACLITAXEL [Suspect]
     Active Substance: PACLITAXEL
     Indication: Transitional cell carcinoma metastatic
     Route: 065

REACTIONS (6)
  - Hypothyroidism [Unknown]
  - Paraesthesia [Unknown]
  - Headache [Unknown]
  - Loss of consciousness [Unknown]
  - Thyroiditis chronic [Unknown]
  - Palmar-plantar erythrodysaesthesia syndrome [Unknown]
